FAERS Safety Report 4402199-X (Version None)
Quarter: 2004Q3

REPORT INFORMATION
  Report Type: 
  Country: None (occurrence: None)
  Receive Date: 20040716
  Receipt Date: 20040709
  Transmission Date: 20050211
  Serious: No
  Sender: FDA-Public Use
  Company Number: D01200402470

PATIENT
  Age: 62 Year
  Sex: Male

DRUGS (12)
  1. FONDAPARINUX [Suspect]
     Indication: MYOCARDIAL INFARCTION
     Dosage: 2.5 MG QD, SUBCUTANEOUS
     Route: 058
     Dates: start: 20040304, end: 20040304
  2. ASPIRIN [Concomitant]
  3. PLAVIX [Concomitant]
  4. RAMIPRIL [Concomitant]
  5. METOPROLOL [Concomitant]
  6. ATORVASTATIN CALCIUM [Concomitant]
  7. METFORMIN HCL [Concomitant]
  8. GLYBURIDE [Concomitant]
  9. PANTOPRAZOLE [Concomitant]
  10. AMITRYPTILLINE (AMITRIPTYLINE) [Concomitant]
  11. ALLOPURINOL [Concomitant]
  12. HCT (HYDROCHLOROTHIAZIDE) [Concomitant]

REACTIONS (1)
  - CATHETER RELATED COMPLICATION [None]
